FAERS Safety Report 7824238-6 (Version None)
Quarter: 2011Q4

REPORT INFORMATION
  Report Type: 
  Country: None (occurrence: None)
  Receive Date: 20111019
  Receipt Date: 20111005
  Transmission Date: 20120403
  Serious: Yes (Hospitalization)
  Sender: FDA-Public Use
  Company Number: DE-CELGENEUS-062-C5013-10120490

PATIENT
  Age: 60 Year
  Sex: Male
  Weight: 65 kg

DRUGS (21)
  1. ALLOPURINOL [Concomitant]
     Indication: PROPHYLAXIS
     Dosage: 300 MILLIGRAM
     Route: 048
     Dates: start: 20101123
  2. COTRIM DS [Concomitant]
     Indication: INFECTION PROPHYLAXIS
     Dosage: 480 MILLIGRAM
     Route: 048
     Dates: start: 20100101
  3. BUDESONIDE [Concomitant]
     Route: 048
  4. MORPHINE [Concomitant]
     Route: 048
  5. POSACONAZOLE [Concomitant]
     Indication: INFECTION PROPHYLAXIS
     Dosage: 5 MILLILITER
     Route: 048
     Dates: start: 20100101
  6. IPRATROPIUM BROMIDE [Concomitant]
     Indication: PNEUMONIA
     Dosage: 10.02 MICROGRAM
     Route: 048
     Dates: start: 20100101
  7. LEVOTHYROXINE SODIUM [Concomitant]
     Dosage: 50 MICROGRAM
     Route: 048
  8. BERODUAL [Concomitant]
     Route: 048
  9. DEXAMETHASONE [Concomitant]
     Dosage: 20 MILLIGRAM
     Route: 048
     Dates: start: 20100101
  10. NOXAFIL [Concomitant]
     Dosage: 15 MILLILITER
     Route: 048
  11. MORPHINE [Concomitant]
     Indication: PAIN
     Dosage: 40 MILLIGRAM
     Route: 048
     Dates: start: 20100101
  12. GABAPENTIN [Concomitant]
     Route: 048
     Dates: start: 20100101
  13. LENALIDOMIDE [Suspect]
     Route: 048
     Dates: start: 20101123, end: 20101204
  14. TORSEMIDE [Concomitant]
     Dosage: 40 MILLIGRAM
     Route: 048
  15. INSULIN DETEMIR [Concomitant]
     Route: 065
  16. PANTOPRAZOLE [Concomitant]
     Indication: PROPHYLAXIS
     Dosage: 40 MILLIGRAM
     Route: 048
     Dates: start: 20100101
  17. ACETYLCYSTEINE [Concomitant]
     Indication: THROMBOSIS PROPHYLAXIS
     Dosage: 600 MILLIGRAM
     Route: 048
     Dates: start: 20100101
  18. INSULIN HUMAN [Concomitant]
     Route: 065
  19. CETROPARIN SODIUM [Concomitant]
     Route: 065
  20. VALTREX [Concomitant]
     Dosage: 1000 MILLIGRAM
     Route: 048
     Dates: start: 20100101
  21. AMPHOTERICIN B [Concomitant]
     Route: 048

REACTIONS (2)
  - DYSPNOEA [None]
  - HYPERCALCAEMIA [None]
